FAERS Safety Report 5541938-1 (Version None)
Quarter: 2007Q4

REPORT INFORMATION
  Report Type: 
  Country: None (occurrence: None)
  Receive Date: 20071210
  Receipt Date: 20071128
  Transmission Date: 20080405
  Serious: Yes (Hospitalization)
  Sender: FDA-Public Use
  Company Number: CA-AMGEN-US245997

PATIENT
  Sex: Male

DRUGS (7)
  1. PANITUMUMAB [Suspect]
     Indication: SQUAMOUS CELL CARCINOMA
     Route: 042
     Dates: start: 20070918
  2. FLUOROURACIL [Suspect]
     Route: 065
  3. CISPLATIN [Suspect]
     Route: 065
  4. HYDROCHLOROTHIAZIDE [Concomitant]
     Route: 065
  5. DIOVAN [Concomitant]
     Route: 065
  6. NEXIUM [Concomitant]
     Route: 065
  7. PROCHLORPERAZINE [Concomitant]
     Route: 065

REACTIONS (2)
  - GASTROENTERITIS [None]
  - STOMATITIS [None]
